FAERS Safety Report 8765202 (Version 1)
Quarter: 2012Q4

REPORT INFORMATION
  Report Type: 
  Country: US (occurrence: US)
  Receive Date: 20120902
  Receipt Date: 20120902
  Transmission Date: 20130627
  Serious: Yes (Hospitalization)
  Sender: FDA-Public Use
  Company Number: US-PFIZER INC-2012214285

PATIENT
  Age: 39 Year
  Sex: Male

DRUGS (11)
  1. CHANTIX [Suspect]
     Dosage: Starter Pack (as directed)
  2. CHANTIX [Suspect]
     Dosage: Continuous Pack (as directed)
  3. DIGOXIN [Concomitant]
     Dosage: 1.25 UNK, 1x/day
  4. COUMADINE [Concomitant]
     Dosage: 5 mg, 1x/day
  5. VERAPAMIL [Concomitant]
     Dosage: 120 UNK, 2x/day
  6. PRILOSEC [Concomitant]
     Dosage: 40 mg, 1x/day
  7. SYMBICORT [Concomitant]
     Dosage: 100 mg, 2x/day
  8. CLINDAMYCIN [Concomitant]
     Dosage: 300 mg qb (circle on b)
  9. ZOCOR [Concomitant]
     Dosage: 20 mg, at bed time (qhs)
  10. ASA [Concomitant]
     Dosage: 325 UNK, 1x/day
  11. NORCO [Concomitant]
     Dosage: 5-325mg 1-2 as needed

REACTIONS (1)
  - Malaise [Unknown]
